FAERS Safety Report 8237568-3 (Version None)
Quarter: 2012Q1

REPORT INFORMATION
  Report Type: 
  Country: None (occurrence: None)
  Receive Date: 20120323
  Receipt Date: 20120308
  Transmission Date: 20120608
  Serious: Yes (Hospitalization)
  Sender: FDA-Public Use
  Company Number: DSJ-2012-04636

PATIENT
  Age: 9 Decade
  Sex: Female

DRUGS (12)
  1. BENICAR HCT [Suspect]
     Indication: HYPERTENSION
     Dosage: 20/12.5 MG (1 IN 1 D), PER ORAL, 10/6.25 MG (1 IN 1 D), PER ORAL
     Route: 048
     Dates: start: 20100101
  2. BENICAR HCT [Suspect]
     Indication: HYPERTENSION
     Dosage: 20/12.5 MG (1 IN 1 D), PER ORAL, 10/6.25 MG (1 IN 1 D), PER ORAL
     Route: 048
     Dates: start: 20070101, end: 20100101
  3. WARFARIN SODIUM [Suspect]
     Indication: PULMONARY EMBOLISM
     Dosage: 5 MG, PER ORAL, 5 MG TABLET ON TUESDAY AND THURSDAY AND A HALF TABLET ON THE OTHER DAYS, PER ORAL, 2
     Route: 048
     Dates: start: 20120301
  4. WARFARIN SODIUM [Suspect]
     Indication: VENOUS THROMBOSIS
     Dosage: 5 MG, PER ORAL, 5 MG TABLET ON TUESDAY AND THURSDAY AND A HALF TABLET ON THE OTHER DAYS, PER ORAL, 2
     Route: 048
     Dates: start: 20120301
  5. WARFARIN SODIUM [Suspect]
     Indication: PULMONARY EMBOLISM
     Dosage: 5 MG, PER ORAL, 5 MG TABLET ON TUESDAY AND THURSDAY AND A HALF TABLET ON THE OTHER DAYS, PER ORAL, 2
     Route: 048
     Dates: start: 20120201, end: 20120201
  6. WARFARIN SODIUM [Suspect]
     Indication: VENOUS THROMBOSIS
     Dosage: 5 MG, PER ORAL, 5 MG TABLET ON TUESDAY AND THURSDAY AND A HALF TABLET ON THE OTHER DAYS, PER ORAL, 2
     Route: 048
     Dates: start: 20120201, end: 20120201
  7. WARFARIN SODIUM [Suspect]
     Indication: PULMONARY EMBOLISM
     Dosage: 5 MG, PER ORAL, 5 MG TABLET ON TUESDAY AND THURSDAY AND A HALF TABLET ON THE OTHER DAYS, PER ORAL, 2
     Route: 048
     Dates: start: 20120201, end: 20120301
  8. WARFARIN SODIUM [Suspect]
     Indication: VENOUS THROMBOSIS
     Dosage: 5 MG, PER ORAL, 5 MG TABLET ON TUESDAY AND THURSDAY AND A HALF TABLET ON THE OTHER DAYS, PER ORAL, 2
     Route: 048
     Dates: start: 20120201, end: 20120301
  9. LEVODOPA/BENSERAZIDE (LEVODOPA, BENSERAZIDE HYDROCHLORIDE) (LEVODOPA, [Concomitant]
  10. SELEGILINE (SELEGILINE) (SELEGILINE) [Concomitant]
  11. NIMODIPINE (NIMODIPINE) (NIMODIPINE) [Concomitant]
  12. OMEPRAZOLE [Concomitant]

REACTIONS (4)
  - INTERNATIONAL NORMALISED RATIO INCREASED [None]
  - PULMONARY EMBOLISM [None]
  - THROMBOSIS [None]
  - HYPOTENSION [None]
